FAERS Safety Report 10217169 (Version 2)
Quarter: 2014Q2

REPORT INFORMATION
  Report Type: Spontaneous
  Country: CN (occurrence: CN)
  Receive Date: 20140604
  Receipt Date: 20140605
  Transmission Date: 20141212
  Serious: Yes (Other)
  Sender: FDA-Public Use
  Company Number: PHHY2014CN064661

PATIENT
  Age: 28 Year
  Sex: Female

DRUGS (6)
  1. PREDNISONE [Suspect]
     Indication: SYSTEMIC LUPUS ERYTHEMATOSUS
     Dosage: 20 MG, PER DAY
  2. PREDNISONE [Suspect]
     Dosage: 120 MG, PER DAY
  3. PREDNISONE [Suspect]
     Dosage: 40 MG, PER DAY
  4. PREDNISONE [Suspect]
     Dosage: 120 MG, PER DAY
     Dates: end: 20120130
  5. PREDNISONE [Suspect]
     Dosage: 40 MG, PER DAY
  6. PREDNISONE [Suspect]
     Dosage: 15 MG, PER DAY

REACTIONS (5)
  - Cardiac hypertrophy [Recovering/Resolving]
  - Mitral valve incompetence [Recovering/Resolving]
  - Chest discomfort [Recovering/Resolving]
  - Dyspnoea [Recovering/Resolving]
  - Cardiac murmur [Recovering/Resolving]
